FAERS Safety Report 6024681-4 (Version None)
Quarter: 2008Q4

REPORT INFORMATION
  Report Type: 
  Country: None (occurrence: None)
  Receive Date: 20081231
  Receipt Date: 20081215
  Transmission Date: 20090506
  Serious: Yes (Death)
  Sender: FDA-Public Use
  Company Number: US-PFIZER INC-2008153738

PATIENT
  Age: 66 Year
  Sex: Female

DRUGS (5)
  1. GABAPENTIN [Suspect]
  2. IBUPROFEN [Suspect]
  3. VERAPAMIL HCL [Suspect]
  4. ACETYLSALICYLIC ACID [Suspect]
  5. QUETIAPINE [Suspect]

REACTIONS (1)
  - COMPLETED SUICIDE [None]
